FAERS Safety Report 8473198-6 (Version None)
Quarter: 2012Q2

REPORT INFORMATION
  Report Type: 
  Country: None (occurrence: None)
  Receive Date: 20120627
  Receipt Date: 20120619
  Transmission Date: 20120825
  Serious: Yes (Hospitalization, Other)
  Sender: FDA-Public Use
  Company Number: BR-ROCHE-709339

PATIENT
  Sex: Female
  Weight: 79 kg

DRUGS (18)
  1. OMEPRAZOLE [Concomitant]
  2. LYRICA [Concomitant]
  3. MABTHERA [Suspect]
     Route: 042
     Dates: start: 20101101, end: 20101101
  4. MABTHERA [Suspect]
     Dosage: 2 CYCLE
     Route: 042
  5. MAXSULID [Concomitant]
  6. HYDROXYCHLOROQUINE SULFATE [Concomitant]
     Dosage: DRUG NAME: REUQUINOL
  7. FLUXENE [Concomitant]
     Dosage: DOSING FREQ: REPORTED AS 60 MG IN THE MORNING
  8. SIMVASTATIN [Concomitant]
  9. OS-CAL +D [Concomitant]
  10. MABTHERA [Suspect]
     Route: 042
  11. DICLOFENAC SODIUM [Concomitant]
  12. PANTOPRAZOLE [Concomitant]
  13. PREDNISONE TAB [Concomitant]
  14. MABTHERA [Suspect]
     Route: 042
     Dates: start: 20101101, end: 20101101
  15. SYNTHROID [Concomitant]
  16. MABTHERA [Suspect]
     Indication: RHEUMATOID ARTHRITIS
     Dosage: ROUTE: ENDOVENOUS, DOSE: 100MG/10 ML.
     Route: 042
     Dates: start: 20100601, end: 20100629
  17. ALPRAZOLAM [Concomitant]
  18. CYMBALTA [Concomitant]

REACTIONS (13)
  - WOUND [None]
  - SUTURE RUPTURE [None]
  - MUSCULOSKELETAL DISORDER [None]
  - RASH [None]
  - APPETITE DISORDER [None]
  - DISEASE PROGRESSION [None]
  - HYPOAESTHESIA [None]
  - HYPERSENSITIVITY [None]
  - OSTEOMYELITIS [None]
  - FLUID REPLACEMENT [None]
  - ERYTHEMA [None]
  - PAIN IN EXTREMITY [None]
  - WEIGHT INCREASED [None]
